FAERS Safety Report 4493239-0 (Version None)
Quarter: 2004Q4

REPORT INFORMATION
  Report Type: 
  Country: None (occurrence: None)
  Receive Date: 20041102
  Receipt Date: 20041018
  Transmission Date: 20050328
  Serious: Yes (Hospitalization)
  Sender: FDA-Public Use
  Company Number: WAES 0409USA00718

PATIENT
  Age: 63 Year
  Sex: Male

DRUGS (9)
  1. FOSAMAX [Suspect]
     Indication: OSTEOPOROSIS
     Dosage: 5 MG/DAILY PO
     Route: 048
     Dates: start: 20030604, end: 20040421
  2. ADALAT CC [Concomitant]
  3. ALDOMET [Concomitant]
  4. BASEN [Concomitant]
  5. CALTAN [Concomitant]
  6. CARDENALIN [Concomitant]
  7. VASOTEC [Concomitant]
  8. ZYLORIC [Concomitant]
  9. BETAXOLOL HCL [Concomitant]

REACTIONS (4)
  - CONDITION AGGRAVATED [None]
  - DIALYSIS [None]
  - HYPERPHOSPHATAEMIA [None]
  - RENAL FAILURE CHRONIC [None]
